FAERS Safety Report 17988433 (Version 1)
Quarter: 2020Q3

REPORT INFORMATION
  Report Type: Spontaneous
  Country: CN (occurrence: CN)
  Receive Date: 20200707
  Receipt Date: 20200707
  Transmission Date: 20201103
  Serious: Yes (Death, Other)
  Sender: FDA-Public Use
  Company Number: CN-ASTRAZENECA-2020SE82247

PATIENT
  Age: 85 Year
  Sex: Male

DRUGS (4)
  1. OSIMERTINIB. [Suspect]
     Active Substance: OSIMERTINIB
     Indication: NON-SMALL CELL LUNG CANCER
     Route: 048
  2. MOXIFLOXACIN. [Suspect]
     Active Substance: MOXIFLOXACIN
     Indication: PYREXIA
     Route: 065
  3. OSIMERTINIB. [Suspect]
     Active Substance: OSIMERTINIB
     Indication: NON-SMALL CELL LUNG CANCER
     Route: 048
  4. IRESSA [Suspect]
     Active Substance: GEFITINIB
     Indication: LUNG ADENOCARCINOMA
     Route: 048

REACTIONS (10)
  - Diarrhoea [Unknown]
  - Torsade de pointes [Fatal]
  - Malignant neoplasm progression [Unknown]
  - Leukopenia [Unknown]
  - Hypokalaemia [Unknown]
  - Drug resistance [Unknown]
  - Constipation [Unknown]
  - Cardiac dysfunction [Unknown]
  - EGFR gene mutation [Unknown]
  - Electrocardiogram QT prolonged [Unknown]
